FAERS Safety Report 9100121 (Version 2)
Quarter: 2013Q2

REPORT INFORMATION
  Report Type: Spontaneous
  Country: US (occurrence: US)
  Receive Date: 20130212
  Receipt Date: 20130503
  Transmission Date: 20140414
  Serious: No
  Sender: FDA-Public Use
  Company Number: US-VERTEX PHARMACEUTICALS INC.-2013-001865

PATIENT
  Age: 52 Year
  Sex: Female
  Weight: 73 kg

DRUGS (4)
  1. INCIVEK [Suspect]
     Indication: HEPATITIS C
     Dosage: 750 MG, TID
     Route: 048
     Dates: start: 20130207
  2. RIBAVIRIN [Suspect]
     Indication: HEPATITIS C
     Dosage: 3 TABS AM, 2 TABS PM
     Route: 048
     Dates: start: 20130207
  3. PEGASYS [Suspect]
     Indication: HEPATITIS C
     Dosage: 120 ?G, QW
     Route: 058
     Dates: start: 20130207
  4. VITAMIN D [Concomitant]

REACTIONS (10)
  - Dizziness [Not Recovered/Not Resolved]
  - Influenza like illness [Recovered/Resolved]
  - Productive cough [Recovered/Resolved]
  - Bone pain [Recovered/Resolved]
  - Chills [Recovered/Resolved]
  - Dry skin [Unknown]
  - Loss of consciousness [Recovered/Resolved]
  - Rash macular [Recovered/Resolved]
  - Anorectal discomfort [Not Recovered/Not Resolved]
  - Pruritus [Unknown]
